FAERS Safety Report 13923517 (Version 6)
Quarter: 2018Q1

REPORT INFORMATION
  Report Type: Spontaneous
  Country: JP (occurrence: JP)
  Receive Date: 20170831
  Receipt Date: 20180212
  Transmission Date: 20180508
  Serious: Yes (Death, Other)
  Sender: FDA-Public Use
  Company Number: JP-009507513-1708JPN002891J

PATIENT
  Age: 80 Year
  Sex: Male
  Weight: 57 kg

DRUGS (19)
  1. NORADRENALINE [Concomitant]
     Active Substance: NOREPINEPHRINE
     Dosage: 3.2 MG, QD
     Route: 042
     Dates: start: 20170202, end: 20170202
  2. VOLUVEN [Concomitant]
     Active Substance: HYDROXYETHYL STARCH 130/0.4
     Dosage: 500 ML, UNK
     Route: 051
     Dates: start: 20170202, end: 20170202
  3. DESFLURANE. [Concomitant]
     Active Substance: DESFLURANE
     Indication: ANAESTHESIA PROCEDURE
     Dosage: 71.498 ML, QD
     Route: 055
     Dates: start: 20170202, end: 20170202
  4. ULTIVA [Concomitant]
     Active Substance: REMIFENTANIL HYDROCHLORIDE
     Indication: ANAESTHESIA PROCEDURE
     Dosage: 1.802 MG, QD
     Route: 042
     Dates: start: 20170202, end: 20170202
  5. FENTANYL. [Concomitant]
     Active Substance: FENTANYL
     Indication: ANALGESIC THERAPY
     Dosage: 400 MICROGRAM, QD
     Route: 042
     Dates: start: 20170202, end: 20170202
  6. BRIDION [Suspect]
     Active Substance: SUGAMMADEX
     Indication: NEUROMUSCULAR BLOCKADE REVERSAL
     Dosage: 200 MG, UNK
     Route: 042
     Dates: start: 20170202, end: 20170202
  7. PHYSIO 140 [Concomitant]
     Active Substance: CALCIUM GLUCONATE\DEXTROSE\MAGNESIUM CHLORIDE\POTASSIUM CHLORIDE\SODIUM ACETATE\SODIUM CHLORIDE\TRISODIUM CITRATE DIHYDRATE
     Dosage: 500 ML, UNK
     Route: 051
     Dates: start: 20170202, end: 20170202
  8. NORADRENALINE [Concomitant]
     Active Substance: NOREPINEPHRINE
     Indication: BLOOD PRESSURE MANAGEMENT
     Dosage: 3.217 MG, UNK
     Route: 042
     Dates: start: 20170202, end: 20170202
  9. PROPOFOL. [Concomitant]
     Active Substance: PROPOFOL
     Indication: ANAESTHESIA PROCEDURE
     Dosage: 70 MG, QD
     Route: 042
     Dates: start: 20170202, end: 20170202
  10. CANDESARTAN. [Concomitant]
     Active Substance: CANDESARTAN
     Dosage: UNK
     Route: 048
  11. SEISHOKU [Concomitant]
     Active Substance: SODIUM CHLORIDE
     Dosage: 200 ML, UNK
     Route: 051
     Dates: start: 20170202, end: 20170202
  12. SOLACET F [Concomitant]
     Dosage: 1350 ML, UNK
     Route: 051
     Dates: start: 20170202, end: 20170202
  13. EPHEDRIN [Concomitant]
     Active Substance: EPHEDRINE HYDROCHLORIDE
     Indication: BLOOD PRESSURE MANAGEMENT
     Dosage: 40 MG, QD
     Route: 042
     Dates: start: 20170202, end: 20170202
  14. NEO-SYNESIN [Concomitant]
     Active Substance: PHENYLEPHRINE HYDROCHLORIDE
     Indication: BLOOD PRESSURE MANAGEMENT
     Dosage: 0.5 MG, QD
     Route: 042
     Dates: start: 20170202, end: 20170202
  15. CEFAZOLIN [Concomitant]
     Active Substance: CEFAZOLIN
     Indication: INFECTION PROPHYLAXIS
     Dosage: 1 G, BID
     Route: 042
     Dates: start: 20170202, end: 20170202
  16. BOSMIN [Concomitant]
     Active Substance: EPINEPHRINE
     Dosage: 1 MG, UNK
     Route: 051
     Dates: start: 20170202, end: 20170202
  17. AMINIC [Concomitant]
     Dosage: 200 ML, UNK
     Route: 051
     Dates: start: 20170202, end: 20170202
  18. ESLAX INTRAVENOUS 25MG/2.5ML [Concomitant]
     Active Substance: ROCURONIUM BROMIDE
     Indication: NEUROMUSCULAR BLOCKING THERAPY
     Dosage: 71.167 MG, QD
     Route: 042
     Dates: start: 20170202, end: 20170202
  19. POPSCAINE [Concomitant]
     Active Substance: LEVOBUPIVACAINE HYDROCHLORIDE
     Indication: ANAESTHESIA PROCEDURE
     Dosage: 3 ML, QD
     Route: 008
     Dates: start: 20170202, end: 20170202

REACTIONS (2)
  - Disseminated intravascular coagulation [Unknown]
  - Death [Fatal]

NARRATIVE: CASE EVENT DATE: 20170202
